FAERS Safety Report 8608186-X (Version None)
Quarter: 2012Q3

REPORT INFORMATION
  Report Type: 
  Country: None (occurrence: None)
  Receive Date: 20120821
  Receipt Date: 20120814
  Transmission Date: 20120928
  Serious: No
  Sender: FDA-Public Use
  Company Number: US-BAYER-2012-084053

PATIENT

DRUGS (3)
  1. ALEVE (CAPLET) [Suspect]
     Indication: TOOTHACHE
     Dosage: 2 DF, UNK
     Route: 048
  2. ASPIRIN [Suspect]
     Dosage: UNK, UNK
     Route: 048
  3. ULTRAM [Concomitant]
     Dosage: 2 DF, UNK

REACTIONS (1)
  - TOOTHACHE [None]
